FAERS Safety Report 8917886 (Version 1)
Quarter: 2012Q4

REPORT INFORMATION
  Report Type: 
  Country: US (occurrence: US)
  Receive Date: 20121120
  Receipt Date: 20121120
  Transmission Date: 20130627
  Serious: No
  Sender: FDA-Public Use
  Company Number: US-ASTRAZENECA-2012SE15404

PATIENT
  Age: 50 Year
  Sex: Male
  Weight: 131.5 kg

DRUGS (1)
  1. NEXIUM [Suspect]
     Indication: GASTROOESOPHAGEAL REFLUX DISEASE
     Route: 048

REACTIONS (7)
  - Dyspepsia [Unknown]
  - Choking [Unknown]
  - Cough [Unknown]
  - Asthma [Unknown]
  - Chest discomfort [Unknown]
  - Hypersensitivity [Unknown]
  - Drug dose omission [Unknown]
